FAERS Safety Report 21084085 (Version 1)
Quarter: 2022Q3

REPORT INFORMATION
  Report Type: Other
  Country: US (occurrence: US)
  Receive Date: 20220714
  Receipt Date: 20220714
  Transmission Date: 20221027
  Serious: Yes (Other)
  Sender: FDA-Public Use
  Company Number: US-GW PHARMA-202202USGW00959

PATIENT
  Age: 3 Year
  Sex: Female

DRUGS (2)
  1. EPIDIOLEX [Suspect]
     Active Substance: CANNABIDIOL
     Indication: Lennox-Gastaut syndrome
     Dosage: 02 DEC 2021: FIRST DOSE OF EPIDIOLEX 40MG WAS GIVEN IN MORNING
     Route: 048
     Dates: start: 20211202
  2. EPIDIOLEX [Suspect]
     Active Substance: CANNABIDIOL
     Dosage: 20 MILLIGRAM, BID (DOSE REDUCED FROM INITIAL DOSE)
     Route: 048

REACTIONS (4)
  - Withdrawal syndrome [Unknown]
  - Social avoidant behaviour [Unknown]
  - Decreased activity [Unknown]
  - Asthenia [Unknown]

NARRATIVE: CASE EVENT DATE: 20211202
